FAERS Safety Report 4956480-6 (Version None)
Quarter: 2006Q1

REPORT INFORMATION
  Report Type: 
  Country: None (occurrence: None)
  Receive Date: 20060328
  Receipt Date: 20060328
  Transmission Date: 20060701
  Serious: Yes (Other)
  Sender: FDA-Public Use
  Company Number: None

PATIENT
  Age: 39 Year
  Sex: Female
  Weight: 60.782 kg

DRUGS (3)
  1. PAXIL CR [Suspect]
     Indication: INSOMNIA
     Dosage: 1 EVERY MORNING
  2. PAXIL CR [Suspect]
     Indication: MYALGIA
     Dosage: 1 EVERY MORNING
  3. PAXIL CR [Suspect]
     Indication: STRESS
     Dosage: 1 EVERY MORNING

REACTIONS (8)
  - ASTHMA [None]
  - BRONCHITIS [None]
  - CHEST DISCOMFORT [None]
  - CHEST PAIN [None]
  - DRUG INEFFECTIVE [None]
  - DRUG WITHDRAWAL SYNDROME [None]
  - DYSPNOEA [None]
  - MALAISE [None]
